FAERS Safety Report 12284481 (Version 1)
Quarter: 2016Q2

REPORT INFORMATION
  Report Type: Spontaneous
  Country: BR (occurrence: BR)
  Receive Date: 20160420
  Receipt Date: 20160420
  Transmission Date: 20160815
  Serious: Yes (Other)
  Sender: FDA-Public Use
  Company Number: BR-ROCHE-1743012

PATIENT
  Age: 9 Month
  Sex: Female

DRUGS (1)
  1. TAMIFLU [Suspect]
     Active Substance: OSELTAMIVIR PHOSPHATE
     Indication: PRODUCT USED FOR UNKNOWN INDICATION
     Dosage: 75 MG DILUTED IN 2 ML OF WATER AND 1 ML BEING ADMINISTERED EVERY 12 HOURS
     Route: 065

REACTIONS (2)
  - Occult blood [Unknown]
  - Diarrhoea [Unknown]
